FAERS Safety Report 5789337-1 (Version None)
Quarter: 2008Q2

REPORT INFORMATION
  Report Type: 
  Country: None (occurrence: None)
  Receive Date: 20080626
  Receipt Date: 20080619
  Transmission Date: 20081010
  Serious: Yes (Life-Threatening, Hospitalization)
  Sender: FDA-Public Use
  Company Number: JP-MERCK-0504USA00745

PATIENT
  Age: 60 Year
  Sex: Male

DRUGS (4)
  1. SINGULAIR [Suspect]
     Indication: ASTHMA
     Route: 048
     Dates: start: 20041221, end: 20050228
  2. HOKUNALIN [Concomitant]
     Indication: ASTHMA
     Route: 065
  3. UNIPHYL [Concomitant]
     Indication: ASTHMA
     Route: 048
  4. FLUTIDE [Concomitant]
     Indication: ASTHMA

REACTIONS (2)
  - ALLERGIC GRANULOMATOUS ANGIITIS [None]
  - ASTHMA [None]
